FAERS Safety Report 7010285-3 (Version None)
Quarter: 2010Q3

REPORT INFORMATION
  Report Type: 
  Country: None (occurrence: None)
  Receive Date: 20100923
  Receipt Date: 20100917
  Transmission Date: 20110219
  Serious: Yes (Other)
  Sender: FDA-Public Use
  Company Number: A0869277A

PATIENT
  Age: 50 Year
  Sex: Female
  Weight: 54.5 kg

DRUGS (10)
  1. LAMICTAL [Suspect]
     Indication: BIPOLAR DISORDER
     Dosage: 300MG PER DAY
     Route: 048
     Dates: start: 19930101
  2. LAMOTRIGINE [Suspect]
     Indication: BIPOLAR DISORDER
     Route: 065
  3. LAMOTRIGINE [Suspect]
     Route: 065
     Dates: start: 20100101
  4. DIET [Concomitant]
  5. EXERCISE [Concomitant]
  6. ZOLOFT [Concomitant]
  7. SIMVASTATIN [Concomitant]
  8. XANAX [Concomitant]
  9. RITALIN [Concomitant]
  10. EYE DROP [Concomitant]

REACTIONS (16)
  - ARTHRITIS [None]
  - BACK PAIN [None]
  - BONE DISORDER [None]
  - CATARACT [None]
  - CATARACT OPERATION [None]
  - CLUMSINESS [None]
  - DISTURBANCE IN ATTENTION [None]
  - FEELING ABNORMAL [None]
  - KYPHOSIS [None]
  - MEMORY IMPAIRMENT [None]
  - MENTAL IMPAIRMENT [None]
  - OSTEOPENIA [None]
  - OSTEOPOROSIS [None]
  - PSYCHOMOTOR HYPERACTIVITY [None]
  - TREATMENT NONCOMPLIANCE [None]
  - WEIGHT DECREASED [None]
